FAERS Safety Report 5562082-3 (Version None)
Quarter: 2007Q4

REPORT INFORMATION
  Report Type: 
  Country: None (occurrence: None)
  Receive Date: 20071215
  Receipt Date: 20071001
  Transmission Date: 20080405
  Serious: No
  Sender: FDA-Public Use
  Company Number: US-AMGEN-KDL245735

PATIENT
  Sex: Male

DRUGS (3)
  1. ENBREL [Suspect]
     Indication: JUVENILE ARTHRITIS
     Dates: start: 20051001, end: 20060901
  2. METHOTREXATE [Concomitant]
     Route: 058
     Dates: start: 20050101
  3. PREDNISONE [Concomitant]

REACTIONS (4)
  - ARTHROPATHY [None]
  - BONE DENSITY DECREASED [None]
  - RED BLOOD CELL SEDIMENTATION RATE INCREASED [None]
  - RHEUMATOID ARTHRITIS [None]
